FAERS Safety Report 4775584-4 (Version None)
Quarter: 2005Q3

REPORT INFORMATION
  Report Type: 
  Country: None (occurrence: None)
  Receive Date: 20050919
  Receipt Date: 20050919
  Transmission Date: 20060218
  Serious: Yes (Life-Threatening, Hospitalization)
  Sender: FDA-Public Use
  Company Number: None

PATIENT
  Age: 43 Year
  Sex: Female
  Weight: 76.2043 kg

DRUGS (1)
  1. LEVAQUIN [Suspect]
     Indication: ACUTE SINUSITIS
     Dosage: 500 OD PO
     Route: 048
     Dates: start: 20050907, end: 20050917

REACTIONS (5)
  - ABASIA [None]
  - ARTHRALGIA [None]
  - CHEST PAIN [None]
  - INSOMNIA [None]
  - MYALGIA [None]
